FAERS Safety Report 12548505 (Version 1)
Quarter: 2016Q3

REPORT INFORMATION
  Report Type: Spontaneous
  Country: US (occurrence: US)
  Receive Date: 20160712
  Receipt Date: 20160712
  Transmission Date: 20161109
  Serious: No
  Sender: FDA-Public Use
  Company Number: US-VERTEX PHARMACEUTICALS-2016-004252

PATIENT
  Age: 28 Year
  Sex: Female
  Weight: 52 kg

DRUGS (14)
  1. PULMOZYME [Concomitant]
     Active Substance: DORNASE ALFA
  2. AQUADEKS [Concomitant]
     Active Substance: MINERALS\VITAMINS
  3. TRETINOIN. [Concomitant]
     Active Substance: TRETINOIN
  4. LEVALBUTEROL. [Concomitant]
     Active Substance: LEVALBUTEROL
  5. MIRALAX [Concomitant]
     Active Substance: POLYETHYLENE GLYCOL 3350
  6. SENNA [Concomitant]
     Active Substance: SENNA LEAF\SENNOSIDES\SENNOSIDES A AND B
  7. ORKAMBI [Suspect]
     Active Substance: IVACAFTOR\LUMACAFTOR
     Indication: CYSTIC FIBROSIS
     Dosage: 2 DF(400-250 MG), BID
     Route: 048
     Dates: start: 201601
  8. ZITHROMAX [Concomitant]
     Active Substance: AZITHROMYCIN DIHYDRATE
     Dosage: 500 MG, UNK
  9. LANTUS [Concomitant]
     Active Substance: INSULIN GLARGINE
  10. MULTIVITAMIN [Concomitant]
     Active Substance: VITAMINS
  11. FLONASE [Concomitant]
     Active Substance: FLUTICASONE PROPIONATE
  12. PRILOSEC [Concomitant]
     Active Substance: OMEPRAZOLE MAGNESIUM
     Dosage: 40 UNK, UNK
  13. HYPERTONIC SALINE [Concomitant]
     Active Substance: SODIUM CHLORIDE
  14. ZENPEP [Concomitant]
     Active Substance: PANCRELIPASE AMYLASE\PANCRELIPASE LIPASE\PANCRELIPASE PROTEASE

REACTIONS (1)
  - Sinusitis [Not Recovered/Not Resolved]

NARRATIVE: CASE EVENT DATE: 20160701
